FAERS Safety Report 10435123 (Version 2)
Quarter: 2014Q3

REPORT INFORMATION
  Report Type: Spontaneous
  Country: DE (occurrence: None)
  Receive Date: 20140701
  Receipt Date: 20140708
  Transmission Date: 20150326
  Serious: Yes (Other)
  Sender: FDA-Public Use
  Company Number: AUR-APL-2014-06158

PATIENT
  Age: 59 Year
  Sex: Female

DRUGS (3)
  1. RIBAVIRIN (RIBAVIRIN) UNKNOWN, UNKNOWN [Suspect]
     Active Substance: RIBAVIRIN
     Indication: HEPATITIS CHOLESTATIC
     Dates: start: 20130826
  2. PEGINTERFERON ALFA-2B (PEGINTERFERON ALFA-2B) [Suspect]
     Active Substance: PEGINTERFERON ALFA-2B
     Indication: HEPATITIS CHOLESTATIC
     Dates: start: 20130826
  3. TELAPREVIR (TELAPREVIR) [Suspect]
     Active Substance: TELAPREVIR
     Indication: HEPATITIS CHOLESTATIC

REACTIONS (6)
  - Pyrexia [None]
  - Toxicity to various agents [None]
  - Leukopenia [None]
  - Malaise [None]
  - Anaemia [None]
  - Nausea [None]
